FAERS Safety Report 8237767-0 (Version None)
Quarter: 2012Q1

REPORT INFORMATION
  Report Type: 
  Country: None (occurrence: None)
  Receive Date: 20120309
  Receipt Date: 20110208
  Transmission Date: 20120608
  Serious: Yes (Other)
  Sender: FDA-Public Use
  Company Number: PHHY2010US71690

PATIENT
  Age: 26 Year
  Sex: Female

DRUGS (4)
  1. EXTAVIA [Suspect]
     Indication: MULTIPLE SCLEROSIS
     Dosage: 0.125 MG, QOD, SUBCUTANEOUS 0.25 MG, QOD, SUBCUTANEOUS
     Route: 058
     Dates: start: 20101008
  2. ACETAMINOPHEN [Concomitant]
  3. REBIF [Concomitant]
  4. COPAXONE [Concomitant]

REACTIONS (9)
  - PYREXIA [None]
  - MUSCULOSKELETAL STIFFNESS [None]
  - NAUSEA [None]
  - PARAESTHESIA [None]
  - GAIT DISTURBANCE [None]
  - CHILLS [None]
  - INJECTION SITE HAEMATOMA [None]
  - MULTIPLE SCLEROSIS RELAPSE [None]
  - FATIGUE [None]
